FAERS Safety Report 8386790-4 (Version None)
Quarter: 2012Q2

REPORT INFORMATION
  Report Type: 
  Country: None (occurrence: None)
  Receive Date: 20120525
  Receipt Date: 20120518
  Transmission Date: 20120825
  Serious: Yes (Death, Hospitalization)
  Sender: FDA-Public Use
  Company Number: IT-BAXTER-2012BAX006266

PATIENT
  Sex: Male

DRUGS (8)
  1. IFOSFAMIDE [Suspect]
     Indication: NON-HODGKIN'S LYMPHOMA
     Route: 042
     Dates: start: 20120210, end: 20120210
  2. LASIX [Concomitant]
     Route: 048
  3. DEXAMETHASONE SODIUM PHOSPHATE [Concomitant]
     Route: 065
  4. MESNA [Concomitant]
     Indication: NON-HODGKIN'S LYMPHOMA
     Route: 042
     Dates: start: 20120210, end: 20120210
  5. ALLOPURINOL [Concomitant]
     Route: 048
  6. CARBOPLATIN [Suspect]
     Indication: NON-HODGKIN'S LYMPHOMA
     Route: 042
     Dates: start: 20120210, end: 20120210
  7. ETOPOSIDE [Suspect]
     Indication: NON-HODGKIN'S LYMPHOMA
     Route: 042
     Dates: start: 20120209, end: 20120211
  8. ZOFRAN [Concomitant]
     Route: 065

REACTIONS (3)
  - BRONCHOPNEUMONIA [None]
  - FEBRILE NEUTROPENIA [None]
  - STAPHYLOCOCCAL SEPSIS [None]
